FAERS Safety Report 5730151-0 (Version None)
Quarter: 2008Q2

REPORT INFORMATION
  Report Type: 
  Country: None (occurrence: None)
  Receive Date: 20080505
  Receipt Date: 20080505
  Transmission Date: 20081010
  Serious: Yes (Other)
  Sender: FDA-Public Use
  Company Number: None

PATIENT
  Age: 81 Year
  Sex: Female
  Weight: 58.9676 kg

DRUGS (2)
  1. DIGETEC [Suspect]
     Indication: ATRIAL FIBRILLATION
     Dosage: 1 DAILY PO
     Route: 048
     Dates: start: 20080311, end: 20080427
  2. DIGETEC [Suspect]
     Indication: CARDIAC FAILURE CONGESTIVE
     Dosage: 1 DAILY PO
     Route: 048
     Dates: start: 20080311, end: 20080427

REACTIONS (15)
  - ANOREXIA [None]
  - ASTHENIA [None]
  - DELUSION [None]
  - DISORIENTATION [None]
  - DYSPEPSIA [None]
  - EMOTIONAL DISTRESS [None]
  - FEELING ABNORMAL [None]
  - GENERAL PHYSICAL HEALTH DETERIORATION [None]
  - HALLUCINATION [None]
  - INCORRECT DOSE ADMINISTERED [None]
  - INSOMNIA [None]
  - MENTAL DISORDER [None]
  - PHARMACEUTICAL PRODUCT COMPLAINT [None]
  - PRURITUS [None]
  - VISION BLURRED [None]
